FAERS Safety Report 11296475 (Version 1)
Quarter: 2015Q3

REPORT INFORMATION
  Report Type: Spontaneous
  Country: US (occurrence: US)
  Receive Date: 20150722
  Receipt Date: 20150722
  Transmission Date: 20151125
  Serious: No
  Sender: FDA-Public Use
  Company Number: US-ELI_LILLY_AND_COMPANY-US200912005242

PATIENT
  Age: 57 Year
  Sex: Male

DRUGS (5)
  1. EFFIENT [Suspect]
     Active Substance: PRASUGREL HYDROCHLORIDE
     Dosage: 60 MG, UNK
     Dates: start: 20091208
  2. ANGIOMAX [Concomitant]
     Active Substance: BIVALIRUDIN
     Dates: start: 20091208
  3. PLAVIX [Concomitant]
     Active Substance: CLOPIDOGREL BISULFATE
     Dates: start: 20091221
  4. EFFIENT [Suspect]
     Active Substance: PRASUGREL HYDROCHLORIDE
     Dosage: 10 MG, UNK
     Dates: start: 200912, end: 20091221
  5. ASPIRIN. [Concomitant]
     Active Substance: ASPIRIN
     Dosage: 325 MG, DAILY (1/D)
     Dates: end: 20091221

REACTIONS (2)
  - Platelet count abnormal [Unknown]
  - Epistaxis [Unknown]

NARRATIVE: CASE EVENT DATE: 200912
